FAERS Safety Report 4508042-2 (Version None)
Quarter: 2004Q4

REPORT INFORMATION
  Report Type: 
  Country: None (occurrence: None)
  Receive Date: 20041123
  Receipt Date: 20031001
  Transmission Date: 20050328
  Serious: No
  Sender: FDA-Public Use
  Company Number: US-GLAXOSMITHKLINE-A0428249A

PATIENT
  Age: 52 Year
  Sex: Male

DRUGS (4)
  1. WELLBUTRIN [Suspect]
     Indication: DEPRESSION
     Dosage: 150MG TWICE PER DAY
     Route: 048
     Dates: start: 20030501
  2. WELLBUTRIN [Suspect]
  3. MULTIVITAMIN WITH MINERALS [Concomitant]
  4. DOXYCYCLINE [Concomitant]

REACTIONS (4)
  - ABDOMINAL PAIN UPPER [None]
  - ASTHENIA [None]
  - LIBIDO DECREASED [None]
  - PROSTATE INFECTION [None]
